FAERS Safety Report 20500032 (Version 1)
Quarter: 2022Q1

REPORT INFORMATION
  Report Type: Spontaneous
  Country: US (occurrence: US)
  Receive Date: 20220222
  Receipt Date: 20220222
  Transmission Date: 20220423
  Serious: No
  Sender: FDA-Public Use
  Company Number: US-UCBSA-2021053574

PATIENT
  Age: 51 Year
  Sex: Female

DRUGS (8)
  1. LEVETIRACETAM [Suspect]
     Active Substance: LEVETIRACETAM
     Indication: Status epilepticus
     Dosage: 1500 MILLIGRAMS
  2. LEVETIRACETAM [Suspect]
     Active Substance: LEVETIRACETAM
     Indication: Posterior reversible encephalopathy syndrome
     Dosage: 1500 MILLIGRAM, 2X/DAY (BID)
  3. LEVETIRACETAM [Suspect]
     Active Substance: LEVETIRACETAM
     Indication: Off label use
  4. PHENYTOIN [Concomitant]
     Active Substance: PHENYTOIN
     Indication: Status epilepticus
     Dosage: 100 MILLIGRAM, 3X/DAY (TID)
  5. PHENYTOIN [Concomitant]
     Active Substance: PHENYTOIN
     Indication: Posterior reversible encephalopathy syndrome
  6. CLOBAZAM [Concomitant]
     Active Substance: CLOBAZAM
     Indication: Status epilepticus
     Dosage: 10 MILLIGRAM, 2X/DAY (BID)
  7. CLOBAZAM [Concomitant]
     Active Substance: CLOBAZAM
     Indication: Posterior reversible encephalopathy syndrome
  8. LORAZEPAM [Concomitant]
     Active Substance: LORAZEPAM
     Indication: Generalised tonic-clonic seizure
     Dosage: 2 MILLIGRAMS OVER TWO HOURS

REACTIONS (1)
  - No adverse event [Unknown]
